FAERS Safety Report 12154664 (Version 1)
Quarter: 2016Q1

REPORT INFORMATION
  Report Type: Report from Study
  Country: PK (occurrence: PK)
  Receive Date: 20160307
  Receipt Date: 20160307
  Transmission Date: 20160526
  Serious: Yes (Death, Other)
  Sender: FDA-Public Use
  Company Number: PHHY2016PK029228

PATIENT
  Age: 48 Year
  Sex: Male

DRUGS (1)
  1. GLIVEC [Suspect]
     Active Substance: IMATINIB MESYLATE
     Indication: CHRONIC MYELOID LEUKAEMIA
     Dosage: 400 MG, UNK
     Route: 048
     Dates: start: 20151026

REACTIONS (5)
  - Death [Fatal]
  - White blood cell count increased [Unknown]
  - Platelet count increased [Unknown]
  - Haemoglobin decreased [Unknown]
  - Haematuria [Unknown]

NARRATIVE: CASE EVENT DATE: 20160110
